FAERS Safety Report 17983385 (Version 1)
Quarter: 2020Q3

REPORT INFORMATION
  Report Type: Spontaneous
  Country: TW (occurrence: TW)
  Receive Date: 20200706
  Receipt Date: 20200706
  Transmission Date: 20201103
  Serious: Yes (Hospitalization)
  Sender: FDA-Public Use
  Company Number: TW-ACELLA PHARMACEUTICALS, LLC-2087041

PATIENT
  Age: 79 Year
  Sex: Female

DRUGS (4)
  1. PARACETAMOL [Suspect]
     Active Substance: ACETAMINOPHEN
     Route: 065
  2. HYDROCODONE BITARTRATE AND CHLORPHENIRAMINE MALEATE [Suspect]
     Active Substance: CHLORPHENIRAMINE MALEATE\HYDROCODONE BITARTRATE
     Indication: ACCIDENTAL OVERDOSE
     Route: 065
  3. METHYLEPHEDRINE HYDROCHLORIDE [Suspect]
     Active Substance: METHYLEPHEDRINE HYDROCHLORIDE
     Route: 065
  4. CAFFEINE. [Suspect]
     Active Substance: CAFFEINE
     Route: 065

REACTIONS (2)
  - Dyskinesia [Recovered/Resolved]
  - Chorea [Recovered/Resolved]
